FAERS Safety Report 10166849 (Version 1)
Quarter: 2014Q2

REPORT INFORMATION
  Report Type: Spontaneous
  Country: PL (occurrence: PL)
  Receive Date: 20140512
  Receipt Date: 20140512
  Transmission Date: 20141212
  Serious: Yes (Hospitalization)
  Sender: FDA-Public Use
  Company Number: PL-BAYER-2014-064219

PATIENT
  Sex: Female

DRUGS (1)
  1. MIRENA [Suspect]
     Dosage: 20 MCG/24HR, CONT
     Route: 015

REACTIONS (5)
  - Ectopic pregnancy [Recovered/Resolved]
  - Peritoneal haemorrhage [None]
  - Drug ineffective [None]
  - Abdominal pain [Recovered/Resolved]
  - Ovarian cyst [None]
